FAERS Safety Report 15343845 (Version 1)
Quarter: 2018Q3

REPORT INFORMATION
  Report Type: Spontaneous
  Country: JP (occurrence: JP)
  Receive Date: 20180903
  Receipt Date: 20180903
  Transmission Date: 20181010
  Serious: Yes (Other)
  Sender: FDA-Public Use
  Company Number: JP-GLAXOSMITHKLINE-JP2018JPN156690

PATIENT
  Sex: Female

DRUGS (2)
  1. AMERGE [Suspect]
     Active Substance: NARATRIPTAN HYDROCHLORIDE
     Dosage: 1.25 MG, UNK
     Route: 048
  2. AMERGE [Suspect]
     Active Substance: NARATRIPTAN HYDROCHLORIDE
     Dosage: 2.5 MG, UNK
     Route: 048

REACTIONS (3)
  - Depressed level of consciousness [Recovered/Resolved]
  - Prescribed underdose [Unknown]
  - Somnolence [Recovered/Resolved]
